FAERS Safety Report 23277257 (Version 1)
Quarter: 2023Q4

REPORT INFORMATION
  Report Type: Spontaneous
  Country: US (occurrence: None)
  Receive Date: 20231207
  Receipt Date: 20231207
  Transmission Date: 20240110
  Serious: Yes (Other)
  Sender: FDA-Public Use
  Company Number: None

PATIENT
  Age: 27 Year
  Sex: Male
  Weight: 112.9 kg

DRUGS (1)
  1. FOSAPREPITANT [Suspect]
     Active Substance: FOSAPREPITANT
     Dosage: FREQUENCY : ONCE;?
     Route: 040

REACTIONS (4)
  - Chest discomfort [None]
  - Abdominal pain [None]
  - Flushing [None]
  - Therapy cessation [None]

NARRATIVE: CASE EVENT DATE: 20231121
